FAERS Safety Report 10441235 (Version 3)
Quarter: 2015Q2

REPORT INFORMATION
  Report Type: Spontaneous
  Country: US (occurrence: US)
  Receive Date: 20140909
  Receipt Date: 20150401
  Transmission Date: 20150821
  Serious: Yes (Hospitalization)
  Sender: FDA-Public Use
  Company Number: US-PFIZER INC-2014245951

PATIENT
  Age: 65 Year
  Sex: Female
  Weight: 71 kg

DRUGS (8)
  1. BENAZEPRIL [Concomitant]
     Active Substance: BENAZEPRIL\BENAZEPRIL HYDROCHLORIDE
     Dosage: 40 MG, UNK
  2. ALPRAZOLAM. [Concomitant]
     Active Substance: ALPRAZOLAM
     Dosage: UNK
  3. ESTROVEN [Suspect]
     Active Substance: DIETARY SUPPLEMENT
     Indication: MENOPAUSAL DISORDER
     Dosage: UNK
     Dates: start: 201407, end: 201408
  4. ESTROVEN [Suspect]
     Active Substance: DIETARY SUPPLEMENT
     Indication: HOT FLUSH
  5. PREMARIN [Suspect]
     Active Substance: ESTROGENS, CONJUGATED
     Indication: HOT FLUSH
     Dosage: 0.0625 MG, AS NEEDED
     Dates: start: 2013
  6. AMLODIPINE BESYLATE. [Concomitant]
     Active Substance: AMLODIPINE BESYLATE
     Dosage: 5 MG, UNK
  7. HYDROCHLOROTHIAZIDE. [Concomitant]
     Active Substance: HYDROCHLOROTHIAZIDE
     Indication: DIURETIC THERAPY
     Dosage: 25 MG, UNK
  8. PREMARIN [Suspect]
     Active Substance: ESTROGENS, CONJUGATED
     Indication: MENOPAUSAL DISORDER
     Dosage: UNK

REACTIONS (10)
  - Insomnia [Recovered/Resolved]
  - Thinking abnormal [Recovered/Resolved]
  - Feeling abnormal [Recovered/Resolved]
  - Speech disorder [Recovered/Resolved]
  - Nervousness [Recovered/Resolved]
  - Depression [Recovered/Resolved]
  - Irritability [Recovered/Resolved]
  - Decreased appetite [Recovered/Resolved]
  - Daydreaming [Recovered/Resolved]
  - Weight decreased [Recovered/Resolved]

NARRATIVE: CASE EVENT DATE: 2014
